FAERS Safety Report 8854723 (Version 2)
Quarter: 2014Q2

REPORT INFORMATION
  Report Type: Spontaneous
  Country: US (occurrence: US)
  Receive Date: 20121023
  Receipt Date: 20131024
  Transmission Date: 20141212
  Serious: No
  Sender: FDA-Public Use
  Company Number: US-PFIZER INC-2012259709

PATIENT
  Sex: Male

DRUGS (2)
  1. VFEND [Suspect]
     Indication: MENINGITIS FUNGAL
     Dosage: 6 MG/KG
  2. DEPO-MEDROL [Suspect]
     Dosage: UNK

REACTIONS (1)
  - Liver function test abnormal [Unknown]
